FAERS Safety Report 4463181-X (Version None)
Quarter: 2004Q3

REPORT INFORMATION
  Report Type: 
  Country: None (occurrence: None)
  Receive Date: 20040928
  Receipt Date: 20040914
  Transmission Date: 20050211
  Serious: Yes (Hospitalization)
  Sender: FDA-Public Use
  Company Number: 2004AP03385

PATIENT
  Age: 68 Year
  Sex: Male
  Weight: 56 kg

DRUGS (10)
  1. OMEPRAL [Suspect]
     Indication: GASTRIC ULCER
     Dosage: 10 MG DAILY PO
     Route: 048
     Dates: start: 20040623, end: 20040628
  2. SULPERAZON [Concomitant]
  3. MIRACLID [Concomitant]
  4. ZANTAC [Concomitant]
  5. REMINARON [Concomitant]
  6. CLINDAMYCIN HCL [Concomitant]
  7. BERIZYM [Concomitant]
  8. ENTERONON [Concomitant]
  9. PHYSIO [Concomitant]
  10. CLINDAMYCIN HCL [Concomitant]

REACTIONS (1)
  - HYPERURICAEMIA [None]
